FAERS Safety Report 15646711 (Version 1)
Quarter: 2018Q4

REPORT INFORMATION
  Report Type: Spontaneous
  Country: US (occurrence: US)
  Receive Date: 20181122
  Receipt Date: 20181122
  Transmission Date: 20190205
  Serious: No
  Sender: FDA-Public Use
  Company Number: US-ESPERO PHARMACEUTICALS-ESP201810-000043

PATIENT
  Age: 77 Year
  Sex: Female

DRUGS (1)
  1. NITROLINGUAL PUMPSPRAY [Suspect]
     Active Substance: NITROGLYCERIN
     Indication: CHEST PAIN

REACTIONS (1)
  - Drug ineffective [Unknown]
